FAERS Safety Report 6058514-7 (Version None)
Quarter: 2009Q1

REPORT INFORMATION
  Report Type: 
  Country: None (occurrence: None)
  Receive Date: 20090130
  Receipt Date: 20081230
  Transmission Date: 20090719
  Serious: No
  Sender: FDA-Public Use
  Company Number: US-BAYER-200821721NA

PATIENT
  Age: 28 Year
  Sex: Female

DRUGS (2)
  1. MIRENA [Suspect]
     Indication: CONTRACEPTION
     Route: 015
     Dates: start: 20071119, end: 20080429
  2. EFFEXOR [Concomitant]
     Indication: DEPRESSION
     Route: 048

REACTIONS (3)
  - DYSPEPSIA [None]
  - PREGNANCY WITH CONTRACEPTIVE DEVICE [None]
  - RESTLESS LEGS SYNDROME [None]
